FAERS Safety Report 10037995 (Version 1)
Quarter: 2014Q1

REPORT INFORMATION
  Report Type: Spontaneous
  Country: US (occurrence: None)
  Receive Date: 20140325
  Receipt Date: 20140325
  Transmission Date: 20141002
  Serious: Yes (Other)
  Sender: FDA-Public Use
  Company Number: None

PATIENT
  Sex: Male

DRUGS (1)
  1. EPZICOM [Suspect]
     Indication: VIRAL INFECTION
     Dosage: 1 TAB
     Route: 048
     Dates: start: 20140224, end: 201402

REACTIONS (3)
  - Hypersensitivity [None]
  - Rash [None]
  - Pyrexia [None]
